FAERS Safety Report 12700636 (Version 1)
Quarter: 2016Q3

REPORT INFORMATION
  Report Type: Spontaneous
  Country: US (occurrence: US)
  Receive Date: 20160830
  Receipt Date: 20160830
  Transmission Date: 20161109
  Serious: No
  Sender: FDA-Public Use
  Company Number: US-SA-2015SA130987

PATIENT
  Age: 87 Year
  Sex: Male

DRUGS (5)
  1. SOTALOL. [Concomitant]
     Active Substance: SOTALOL
  2. ASPIRIN. [Concomitant]
     Active Substance: ASPIRIN
  3. MULTAQ [Suspect]
     Active Substance: DRONEDARONE
     Indication: ATRIAL FIBRILLATION
     Route: 065
     Dates: start: 2014
  4. WARFARIN [Concomitant]
     Active Substance: WARFARIN
  5. AMIODARONE [Concomitant]
     Active Substance: AMIODARONE

REACTIONS (3)
  - Skin discolouration [Not Recovered/Not Resolved]
  - Pruritus [Not Recovered/Not Resolved]
  - Sleep disorder [Not Recovered/Not Resolved]
